FAERS Safety Report 21165127 (Version 2)
Quarter: 2022Q3

REPORT INFORMATION
  Report Type: Report from Study
  Country: IN (occurrence: IN)
  Receive Date: 20220803
  Receipt Date: 20220824
  Transmission Date: 20221027
  Serious: Yes (Other)
  Sender: FDA-Public Use
  Company Number: IN-Merck Healthcare KGaA-9339070

PATIENT
  Sex: Male

DRUGS (4)
  1. CETUXIMAB [Suspect]
     Active Substance: CETUXIMAB
     Indication: Head and neck cancer metastatic
     Dosage: 700 MG, 2/M
     Route: 065
     Dates: start: 20220525
  2. CETUXIMAB [Suspect]
     Active Substance: CETUXIMAB
     Dosage: 700 MG, (TIME OF CYCLE INCREASED)
     Route: 065
  3. DOCETAXEL [Concomitant]
     Active Substance: DOCETAXEL
     Indication: Head and neck cancer metastatic
     Dosage: UNK
  4. CARBOPLATIN [Concomitant]
     Active Substance: CARBOPLATIN
     Indication: Head and neck cancer metastatic
     Dosage: UNK

REACTIONS (4)
  - Constipation [Unknown]
  - Weight decreased [Not Recovered/Not Resolved]
  - Asthenia [Unknown]
  - Off label use [Unknown]
